FAERS Safety Report 4852110-2 (Version None)
Quarter: 2005Q4

REPORT INFORMATION
  Report Type: 
  Country: None (occurrence: None)
  Receive Date: 20051209
  Receipt Date: 20051129
  Transmission Date: 20060501
  Serious: Yes (Life-Threatening, Hospitalization)
  Sender: FDA-Public Use
  Company Number: CAR_0057_2005

PATIENT
  Age: 56 Year
  Sex: Male

DRUGS (4)
  1. FLUOXETINE [Suspect]
     Dosage: 20 MG BID
  2. FLUOXETINE [Suspect]
     Dosage: 60 MG QDAY
  3. BUSPIRONE [Concomitant]
  4. OLANZAPINE [Concomitant]

REACTIONS (6)
  - ANXIETY [None]
  - BLOOD UREA DECREASED [None]
  - HYPERHIDROSIS [None]
  - INAPPROPRIATE ANTIDIURETIC HORMONE SECRETION [None]
  - NERVOUSNESS [None]
  - SEROTONIN SYNDROME [None]
